FAERS Safety Report 15057081 (Version 1)
Quarter: 2018Q2

REPORT INFORMATION
  Report Type: Spontaneous
  Country: US (occurrence: US)
  Receive Date: 20180604
  Receipt Date: 20180604
  Transmission Date: 20180711
  Serious: Yes (Death)
  Sender: FDA-Public Use
  Company Number: None

PATIENT
  Age: 31 Year
  Sex: Male

DRUGS (2)
  1. LYSODREN [Suspect]
     Active Substance: MITOTANE
     Indication: NEOPLASM MALIGNANT
     Route: 048
     Dates: start: 20180406
  2. ONDANSETRON HCI [Concomitant]

REACTIONS (1)
  - Death [None]
